FAERS Safety Report 8688171 (Version 3)
Quarter: 2012Q4

REPORT INFORMATION
  Report Type: Report from Study
  Country: US (occurrence: US)
  Receive Date: 20120727
  Receipt Date: 20121107
  Transmission Date: 20130627
  Serious: Yes (Death)
  Sender: FDA-Public Use
  Company Number: US-GLAXOSMITHKLINE-B0818442A

PATIENT
  Age: 32 Year
  Sex: Male
  Weight: 63 kg

DRUGS (3)
  1. BUPROPION HCL [Suspect]
     Indication: SMOKING CESSATION THERAPY
     Dosage: 150MG Twice per day
     Route: 048
     Dates: start: 20120627
  2. CLARITIN [Concomitant]
     Dosage: 10MG Per day
     Route: 048
     Dates: start: 20120624
  3. MULTIVITAMIN [Concomitant]
     Route: 048
     Dates: start: 2011

REACTIONS (1)
  - Accidental overdose [Fatal]
